FAERS Safety Report 7334468-8 (Version None)
Quarter: 2011Q1

REPORT INFORMATION
  Report Type: 
  Country: None (occurrence: None)
  Receive Date: 20110307
  Receipt Date: 20110228
  Transmission Date: 20110831
  Serious: Yes (Death)
  Sender: FDA-Public Use
  Company Number: PHHY2010US87538

PATIENT
  Sex: Male

DRUGS (8)
  1. OMEPRAZOLE [Concomitant]
     Dosage: UNK
  2. ADVAIR DISKUS 100/50 [Concomitant]
  3. MIRALAX [Concomitant]
  4. COMBIVENT [Concomitant]
  5. AMITRIPTYLINE [Concomitant]
     Dosage: UNK
  6. EXELON [Suspect]
     Dosage: 9.5 MG, UNK
     Route: 062
     Dates: end: 20101206
  7. AVODART [Concomitant]
     Dosage: UNK
  8. NYSTATIN [Concomitant]

REACTIONS (5)
  - RIB FRACTURE [None]
  - APPLICATION SITE IRRITATION [None]
  - PNEUMONIA [None]
  - DEMENTIA [None]
  - RASH [None]
